FAERS Safety Report 17152989 (Version 7)
Quarter: 2020Q4

REPORT INFORMATION
  Report Type: Spontaneous
  Country: GR (occurrence: GR)
  Receive Date: 20191213
  Receipt Date: 20201020
  Transmission Date: 20210113
  Serious: Yes (Death, Hospitalization, Other)
  Sender: FDA-Public Use
  Company Number: GR-009507513-1912GRC000146

PATIENT
  Age: 75 Year
  Sex: Male

DRUGS (1)
  1. KEYTRUDA [Suspect]
     Active Substance: PEMBROLIZUMAB
     Indication: NON-SMALL CELL LUNG CANCER
     Dosage: 200 MILLIGRAM
     Dates: start: 201811, end: 201907

REACTIONS (17)
  - Jejunal perforation [Unknown]
  - Adverse event [Unknown]
  - Pneumonitis [Recovered/Resolved]
  - Diarrhoea [Recovered/Resolved]
  - Angina pectoris [Unknown]
  - Colitis [Recovered/Resolved]
  - Cancer in remission [Unknown]
  - Hepatic failure [Fatal]
  - Embolism arterial [Unknown]
  - Dermatitis [Recovered/Resolved]
  - Prerenal failure [Recovered/Resolved]
  - Colitis [Recovered/Resolved]
  - Diabetes mellitus [Recovered/Resolved]
  - Diabetes mellitus [Not Recovered/Not Resolved]
  - Malignant neoplasm progression [Fatal]
  - Vascular occlusion [Unknown]
  - Malignant neoplasm progression [Unknown]

NARRATIVE: CASE EVENT DATE: 2018
